FAERS Safety Report 22329752 (Version 1)
Quarter: 2023Q2

REPORT INFORMATION
  Report Type: Spontaneous
  Country: US (occurrence: None)
  Receive Date: 20230517
  Receipt Date: 20230517
  Transmission Date: 20230722
  Serious: No
  Sender: FDA-Public Use
  Company Number: US-ROCHE-3231202

PATIENT
  Age: 85 Year
  Sex: Male
  Weight: 78.6 kg

DRUGS (1)
  1. ACTEMRA [Suspect]
     Active Substance: TOCILIZUMAB
     Indication: Giant cell arteritis
     Dosage: STRENGTH: 6 MG/KG
     Route: 042
     Dates: start: 20220816

REACTIONS (2)
  - Nasopharyngitis [Unknown]
  - Infection [Unknown]
